FAERS Safety Report 16583930 (Version 2)
Quarter: 2019Q3

REPORT INFORMATION
  Report Type: Spontaneous
  Country: US (occurrence: US)
  Receive Date: 20190717
  Receipt Date: 20190812
  Transmission Date: 20191004
  Serious: No
  Sender: FDA-Public Use
  Company Number: US-ASTRAZENECA-2019SE92900

PATIENT
  Sex: Male
  Weight: 83.9 kg

DRUGS (2)
  1. BYDUREON BCISE [Suspect]
     Active Substance: EXENATIDE
     Indication: TYPE 2 DIABETES MELLITUS
     Route: 058
  2. BYDUREON [Suspect]
     Active Substance: EXENATIDE
     Indication: TYPE 2 DIABETES MELLITUS
     Route: 058

REACTIONS (5)
  - Glycosylated haemoglobin increased [Unknown]
  - Product dose omission [Recovered/Resolved]
  - Device leakage [Unknown]
  - Pollakiuria [Recovered/Resolved]
  - Injection site nodule [Recovering/Resolving]
